FAERS Safety Report 11194907 (Version 1)
Quarter: 2015Q2

REPORT INFORMATION
  Report Type: Spontaneous
  Country: US (occurrence: US)
  Receive Date: 20150617
  Receipt Date: 20150617
  Transmission Date: 20150821
  Serious: Yes (Life-Threatening, Hospitalization, Other)
  Sender: FDA-Public Use
  Company Number: US-DRREDDYS-USA/USA/15/0048676

PATIENT
  Age: 60 Year
  Sex: Male

DRUGS (2)
  1. AMLODIPINE BESYLATE. [Interacting]
     Active Substance: AMLODIPINE BESYLATE
     Indication: HYPERTENSION
     Route: 065
  2. SIMVASTATIN. [Suspect]
     Active Substance: SIMVASTATIN
     Indication: PRODUCT USED FOR UNKNOWN INDICATION
     Route: 065

REACTIONS (6)
  - Rhabdomyolysis [Recovering/Resolving]
  - Drug interaction [Unknown]
  - Urinary tract infection [Unknown]
  - Chronic kidney disease [Not Recovered/Not Resolved]
  - Inborn error of metabolism [Unknown]
  - Acute myocardial infarction [Unknown]
